FAERS Safety Report 21690550 (Version 1)
Quarter: 2022Q4

REPORT INFORMATION
  Report Type: Spontaneous
  Country: US (occurrence: US)
  Receive Date: 20221206
  Receipt Date: 20221206
  Transmission Date: 20230113
  Serious: No
  Sender: FDA-Public Use
  Company Number: US-BAUSCHBL-2022BNL002421

PATIENT
  Age: 74 Year
  Sex: Male
  Weight: 86.260 kg

DRUGS (2)
  1. ALREX [Suspect]
     Active Substance: LOTEPREDNOL ETABONATE
     Indication: Corneal abrasion
     Dosage: 2-3 DROPS,
     Route: 047
  2. ERYTHROMYCIN [Concomitant]
     Active Substance: ERYTHROMYCIN
     Indication: Product used for unknown indication

REACTIONS (6)
  - Feeling abnormal [Unknown]
  - Nausea [Unknown]
  - Cognitive disorder [Unknown]
  - Expired product administered [Unknown]
  - Wrong dose [Unknown]
  - Product delivery mechanism issue [Unknown]
